FAERS Safety Report 17791192 (Version 1)
Quarter: 2020Q2

REPORT INFORMATION
  Report Type: Spontaneous
  Country: US (occurrence: US)
  Receive Date: 20200515
  Receipt Date: 20200515
  Transmission Date: 20200714
  Serious: Yes (Hospitalization)
  Sender: FDA-Public Use
  Company Number: None

PATIENT
  Age: 64 Year
  Sex: Male
  Weight: 106.2 kg

DRUGS (19)
  1. STALOL [Concomitant]
  2. FUROSEMIDE. [Concomitant]
     Active Substance: FUROSEMIDE
  3. EPLERENON [Concomitant]
     Active Substance: EPLERENONE
  4. TAMSULOSIN [Concomitant]
     Active Substance: TAMSULOSIN
  5. METAMUCIL [Concomitant]
     Active Substance: PLANTAGO SEED
  6. LANTUS [Concomitant]
     Active Substance: INSULIN GLARGINE
  7. GLUCOSE MONITORING (CGM) [Concomitant]
  8. CARVEDILOL. [Concomitant]
     Active Substance: CARVEDILOL
  9. FARXIGA [Suspect]
     Active Substance: DAPAGLIFLOZIN PROPANEDIOL
     Indication: TYPE 2 DIABETES MELLITUS
     Dosage: ?          QUANTITY:1 TABLET(S);?
     Route: 048
     Dates: start: 20200501, end: 20200509
  10. METFORMIN [Concomitant]
     Active Substance: METFORMIN HYDROCHLORIDE
  11. ENTRESTO [Concomitant]
     Active Substance: SACUBITRIL\VALSARTAN
  12. COUMADIN [Concomitant]
     Active Substance: WARFARIN SODIUM
  13. LIDOCAINE/HYDROCORTISONE COMPOUND PASTE [Concomitant]
  14. VITAMIN B12 [Concomitant]
     Active Substance: CYANOCOBALAMIN
  15. HUMALOG [Concomitant]
     Active Substance: INSULIN LISPRO
  16. FARXIGA [Concomitant]
     Active Substance: DAPAGLIFLOZIN PROPANEDIOL
  17. DIGOXIN. [Concomitant]
     Active Substance: DIGOXIN
  18. GABAPENTIN. [Concomitant]
     Active Substance: GABAPENTIN
  19. VITAMIN D3 [Concomitant]
     Active Substance: CHOLECALCIFEROL

REACTIONS (4)
  - Swollen tongue [None]
  - Pancreatitis [None]
  - Lip swelling [None]
  - Rash [None]

NARRATIVE: CASE EVENT DATE: 20200510
